FAERS Safety Report 5842330-2 (Version None)
Quarter: 2008Q3

REPORT INFORMATION
  Report Type: 
  Country: None (occurrence: None)
  Receive Date: 20080731
  Receipt Date: 20080610
  Transmission Date: 20090109
  Serious: No
  Sender: FDA-Public Use
  Company Number: US200803001947

PATIENT
  Age: 65 Year
  Sex: Female
  Weight: 98.9 kg

DRUGS (11)
  1. BYETTA [Suspect]
     Indication: TYPE 2 DIABETES MELLITUS
     Dosage: SEE IMAGE
     Route: 058
     Dates: start: 20071101, end: 20071201
  2. BYETTA [Suspect]
     Indication: TYPE 2 DIABETES MELLITUS
     Dosage: SEE IMAGE
     Route: 058
     Dates: start: 20071201, end: 20071201
  3. BYETTA [Suspect]
     Indication: TYPE 2 DIABETES MELLITUS
     Dosage: SEE IMAGE
     Route: 058
     Dates: start: 20071201, end: 20071201
  4. BYETTA [Suspect]
     Indication: TYPE 2 DIABETES MELLITUS
     Dosage: SEE IMAGE
     Route: 058
     Dates: start: 20071201
  5. BYETTA [Suspect]
  6. STARLIX [Concomitant]
  7. NORVASC [Concomitant]
  8. ZESTRIL [Concomitant]
  9. DIURETICS [Concomitant]
  10. TENORMIN [Concomitant]
  11. TRIAMTERENE (TRIAMTERENE) [Concomitant]

REACTIONS (4)
  - BACK PAIN [None]
  - INFLAMMATION [None]
  - JOINT SWELLING [None]
  - PAIN [None]
